FAERS Safety Report 4368814-4 (Version None)
Quarter: 2004Q2

REPORT INFORMATION
  Report Type: 
  Country: None (occurrence: None)
  Receive Date: 20040528
  Receipt Date: 20040520
  Transmission Date: 20050107
  Serious: Yes (Other)
  Sender: FDA-Public Use
  Company Number: 2004-04-0677

PATIENT
  Age: 62 Year
  Sex: Female

DRUGS (3)
  1. NASONEX [Suspect]
     Indication: HYPERSENSITIVITY
     Dosage: 100 MCG PRN NASAL SPRAY
  2. ALTACE [Concomitant]
  3. NORVASC [Concomitant]

REACTIONS (2)
  - INTRAOCULAR PRESSURE INCREASED [None]
  - OPTIC DISC DISORDER [None]
